FAERS Safety Report 18572552 (Version 1)
Quarter: 2020Q4

REPORT INFORMATION
  Report Type: Spontaneous
  Country: CN (occurrence: CN)
  Receive Date: 20201202
  Receipt Date: 20201202
  Transmission Date: 20210114
  Serious: Yes (Other)
  Sender: FDA-Public Use
  Company Number: CN-ASTRAZENECA-2020SF58942

PATIENT
  Age: 26664 Day
  Sex: Male
  Weight: 65 kg

DRUGS (3)
  1. FLUMUCIL [Suspect]
     Active Substance: ACETYLCYSTEINE
     Indication: LUNG DISORDER
     Route: 055
     Dates: start: 20201108, end: 20201111
  2. SODIUM CHLORIDE. [Concomitant]
     Active Substance: SODIUM CHLORIDE
     Indication: VEHICLE SOLUTION USE
     Route: 055
     Dates: start: 20201108, end: 20201111
  3. PULMICORT RESPULES [Suspect]
     Active Substance: BUDESONIDE
     Indication: LUNG DISORDER
     Route: 055
     Dates: start: 20201108, end: 20201111

REACTIONS (3)
  - Dyspnoea [Recovering/Resolving]
  - Breath holding [Recovering/Resolving]
  - Asthma [Recovering/Resolving]

NARRATIVE: CASE EVENT DATE: 20201111
